FAERS Safety Report 7361224-7 (Version None)
Quarter: 2011Q1

REPORT INFORMATION
  Report Type: 
  Country: None (occurrence: None)
  Receive Date: 20110318
  Receipt Date: 20110224
  Transmission Date: 20110831
  Serious: No
  Sender: FDA-Public Use
  Company Number: US-BAYER-2011-018504

PATIENT
  Sex: Female

DRUGS (2)
  1. ALEVE (CAPLET) [Suspect]
     Indication: BACK PAIN
     Dosage: DAILY, ONCE
     Dates: start: 20110101
  2. XANAX [Concomitant]
     Dosage: UNK
     Route: 048

REACTIONS (1)
  - NO ADVERSE EVENT [None]
